FAERS Safety Report 9594583 (Version 1)
Quarter: 2013Q3

REPORT INFORMATION
  Report Type: Spontaneous
  Country: US (occurrence: None)
  Receive Date: 20130923
  Receipt Date: 20130923
  Transmission Date: 20140515
  Serious: Yes (Other)
  Sender: FDA-Public Use
  Company Number: 2012ST000668

PATIENT
  Age: 38 Year
  Sex: Male

DRUGS (1)
  1. MATULANE [Suspect]
     Indication: HODGKIN^S DISEASE
     Route: 048

REACTIONS (2)
  - Oesophageal carcinoma [None]
  - Infection [None]
